FAERS Safety Report 10840835 (Version 1)
Quarter: 2015Q1

REPORT INFORMATION
  Report Type: Spontaneous
  Country: None (occurrence: None)
  Receive Date: 20150218
  Receipt Date: 20150218
  Transmission Date: 20150721
  Serious: No
  Sender: FDA-Public Use
  Company Number: None

PATIENT
  Age: 68 Year
  Sex: Female

DRUGS (1)
  1. AFINITOR [Suspect]
     Active Substance: EVEROLIMUS
     Indication: BREAST CANCER
     Dosage: 10MG, 1 TABLET DAILY, ORAL
     Route: 048
     Dates: start: 20141128

REACTIONS (7)
  - Oropharyngeal pain [None]
  - Skin lesion [None]
  - Mouth ulceration [None]
  - Restlessness [None]
  - Ageusia [None]
  - Epistaxis [None]
  - Feeding disorder [None]

NARRATIVE: CASE EVENT DATE: 20150201
